FAERS Safety Report 8390761-1 (Version None)
Quarter: 2012Q2

REPORT INFORMATION
  Report Type: 
  Country: None (occurrence: None)
  Receive Date: 20120529
  Receipt Date: 20120521
  Transmission Date: 20120825
  Serious: Yes (Hospitalization, Other)
  Sender: FDA-Public Use
  Company Number: US-ASTRAZENECA-2011SE32185

PATIENT
  Age: 50 Year
  Sex: Female
  Weight: 83.9 kg

DRUGS (30)
  1. ZANTAC [Concomitant]
     Route: 048
     Dates: start: 20120105
  2. TAGAMET [Concomitant]
  3. PREMARIN [Concomitant]
     Route: 048
     Dates: start: 20060201, end: 20090601
  4. NESCON PD [Concomitant]
     Dosage: 25-275 MG
     Dates: start: 20060123
  5. VIVELLE-DOT [Concomitant]
     Dosage: 0.1 MG DIS
     Dates: start: 20060220
  6. GABAPENTIN [Concomitant]
  7. NEXIUM [Suspect]
     Route: 048
     Dates: start: 20070725
  8. SUDAFED 12 HOUR [Concomitant]
     Indication: SINUS CONGESTION
     Dosage: AS NEEDED
  9. PROPO-N/APAP [Concomitant]
     Dosage: 100-650 TAB
     Dates: start: 20050221
  10. ETODOLAC [Concomitant]
     Dates: start: 20060123
  11. ACETAMINOPHEN AND HYDROCODONE BITARTRATE [Concomitant]
     Dosage: 5-500 MG
     Dates: start: 20060127
  12. PHENAZOPYRID PLUS [Concomitant]
     Dates: start: 20060301
  13. KOMASIDINE [Concomitant]
     Indication: ULCER
     Dates: start: 20110610
  14. NEXIUM [Suspect]
     Route: 048
     Dates: start: 20060201, end: 20060201
  15. FIBER SUPPLEMENT [Concomitant]
  16. CEPHADYN [Concomitant]
     Dosage: 650-50
  17. SULFASALAZINE [Concomitant]
  18. NEXIUM [Suspect]
     Indication: GASTROOESOPHAGEAL REFLUX DISEASE
     Route: 048
     Dates: start: 20050117
  19. IBUPROFEN [Concomitant]
     Route: 048
     Dates: start: 20060306
  20. TYLENOL [Concomitant]
     Indication: HEADACHE
     Dosage: AS NEEDED
  21. NEXIUM [Suspect]
     Route: 048
     Dates: start: 20060201, end: 20110401
  22. VITAMINS SUPPLEMENTS [Concomitant]
  23. LYRICA [Concomitant]
     Dates: start: 20110610
  24. NEXIUM [Suspect]
     Route: 048
     Dates: start: 20060101, end: 20060101
  25. NEXIUM [Suspect]
     Route: 048
     Dates: start: 20060306
  26. ZANTAC [Concomitant]
     Dosage: 75 MG TO 150 MG
  27. IBUPROFEN [Concomitant]
     Indication: HEADACHE
     Dates: start: 20060227
  28. CELEBREX [Concomitant]
  29. PEPCID [Concomitant]
  30. IBUPROFEN [Concomitant]
     Dosage: AS NEEDED
     Dates: start: 20090601

REACTIONS (17)
  - ABASIA [None]
  - BONE DENSITY DECREASED [None]
  - HYPOKINESIA [None]
  - ABDOMINAL ADHESIONS [None]
  - FOOT FRACTURE [None]
  - PERONEAL NERVE PALSY [None]
  - OSTEOPOROTIC FRACTURE [None]
  - COLITIS ISCHAEMIC [None]
  - DEPRESSION [None]
  - QUALITY OF LIFE DECREASED [None]
  - INTESTINAL HAEMORRHAGE [None]
  - OSTEOPOROSIS [None]
  - LOWER LIMB FRACTURE [None]
  - EXOSTOSIS [None]
  - ABDOMINAL PAIN [None]
  - COMPLEX REGIONAL PAIN SYNDROME [None]
  - ULCER [None]
